FAERS Safety Report 16143712 (Version 2)
Quarter: 2019Q2

REPORT INFORMATION
  Report Type: Spontaneous
  Country: CA (occurrence: CA)
  Receive Date: 20190401
  Receipt Date: 20190419
  Transmission Date: 20190711
  Serious: Yes (Other)
  Sender: FDA-Public Use
  Company Number: CA-PFIZER INC-2019130516

PATIENT
  Age: 40 Year
  Sex: Female

DRUGS (14)
  1. DEPO-PROVERA [Suspect]
     Active Substance: MEDROXYPROGESTERONE ACETATE
     Dosage: 150 MG/ML, UNK
     Dates: start: 20050329
  2. DEPO-PROVERA [Suspect]
     Active Substance: MEDROXYPROGESTERONE ACETATE
     Dosage: 150 MG/ML, UNK
     Dates: start: 20051018
  3. NORFLOXACINE TEVA [Concomitant]
     Dosage: 1 DF (TABLET), 2X/DAY FOR 7 DAYS
     Dates: start: 20050216
  4. APO-MELOXICAM [Concomitant]
     Active Substance: MELOXICAM
     Dosage: 1 DF (TABLET), DAILY WITH FOOD
     Dates: start: 20050903
  5. DEPO-PROVERA [Suspect]
     Active Substance: MEDROXYPROGESTERONE ACETATE
     Dosage: 150 MG/ML, UNK
     Dates: start: 20041228
  6. RATIO-LENOLTEC NO 3 [Concomitant]
     Active Substance: ACETAMINOPHEN\CAFFEINE\CODEINE PHOSPHATE
     Dosage: 1 DF (TABLET), EVERY 4 HOURS AS NEEDED
     Dates: start: 20050712
  7. PALAFER [Concomitant]
     Active Substance: FERROUS FUMARATE
     Dosage: 1 DF (CAPSULE), 2X/DAY
     Dates: start: 20050124
  8. VOLTAREN RAPID [Concomitant]
     Active Substance: DICLOFENAC POTASSIUM
     Dosage: 1 DF (TABLET), 3X/DAY WITH FOOD
     Dates: start: 20050910
  9. DEPO-PROVERA [Suspect]
     Active Substance: MEDROXYPROGESTERONE ACETATE
     Dosage: 150 MG/ML, UNK
     Dates: start: 20050124
  10. APO-MELOXICAM [Concomitant]
     Active Substance: MELOXICAM
     Dosage: 1 DF (TABLET), ONCE A DAY
     Dates: start: 20051024
  11. DEPO-PROVERA [Suspect]
     Active Substance: MEDROXYPROGESTERONE ACETATE
     Dosage: 150 MG/ML, UNK
     Dates: start: 20050712
  12. IMOVANE [Concomitant]
     Active Substance: ZOPICLONE
     Dosage: 1 DF (TABLET), AS NEEDED AT BEDTIME
     Dates: start: 20051118
  13. APO-MELOXICAM [Concomitant]
     Active Substance: MELOXICAM
     Dosage: 1 DF (TABLET), DAILY WITH FOOD
     Dates: start: 20050817
  14. FLONASE [Concomitant]
     Active Substance: FLUTICASONE PROPIONATE
     Dosage: SHAKE GENTLY AND SPRAY 2 SPRAYS IN EACH NOSTRIL TWICE A DAY
     Route: 045
     Dates: start: 20051104

REACTIONS (1)
  - Osteopenia [Not Recovered/Not Resolved]

NARRATIVE: CASE EVENT DATE: 20060116
